FAERS Safety Report 4587829-4 (Version None)
Quarter: 2005Q1

REPORT INFORMATION
  Report Type: 
  Country: None (occurrence: None)
  Receive Date: 20050125
  Receipt Date: 20040901
  Transmission Date: 20050727
  Serious: No
  Sender: FDA-Public Use
  Company Number: USA040977168

PATIENT
  Sex: Female

DRUGS (3)
  1. FORTEO [Suspect]
     Indication: ARTHRALGIA
     Dates: start: 20040816
  2. FOSAMAX [Concomitant]
  3. MIACALCIN [Concomitant]

REACTIONS (1)
  - PAIN IN EXTREMITY [None]
